FAERS Safety Report 21097650 (Version 1)
Quarter: 2022Q3

REPORT INFORMATION
  Report Type: Spontaneous
  Country: GB (occurrence: GB)
  Receive Date: 20220719
  Receipt Date: 20220719
  Transmission Date: 20221026
  Serious: Yes (Death)
  Sender: FDA-Public Use
  Company Number: GB-ORGANON-O2207GBR001303

PATIENT
  Age: 36 Year
  Sex: Male

DRUGS (5)
  1. MIRTAZAPINE [Interacting]
     Active Substance: MIRTAZAPINE
     Dosage: UNK
     Route: 048
  2. CHLORDIAZEPOXIDE [Interacting]
     Active Substance: CHLORDIAZEPOXIDE
     Dosage: UNK
  3. METHADONE [Interacting]
     Active Substance: METHADONE HYDROCHLORIDE
     Dosage: UNK
     Route: 048
  4. METHADONE [Interacting]
     Active Substance: METHADONE HYDROCHLORIDE
     Dosage: 50 MILLIGRAM IN THE AFTERNOON
     Route: 048
  5. NORDAZEPAM [Suspect]
     Active Substance: NORDAZEPAM
     Dosage: UNK

REACTIONS (2)
  - Toxicity to various agents [Fatal]
  - Drug interaction [Fatal]
